FAERS Safety Report 5145681-2 (Version None)
Quarter: 2006Q4

REPORT INFORMATION
  Report Type: 
  Country: None (occurrence: None)
  Receive Date: 20061102
  Receipt Date: 20061025
  Transmission Date: 20070319
  Serious: Yes (Other)
  Sender: FDA-Public Use
  Company Number: 2006SP004973

PATIENT
  Age: 41 Year
  Sex: Female

DRUGS (2)
  1. PEG-INTRON [Suspect]
     Indication: CHRONIC MYELOID LEUKAEMIA
     Dosage: 15 MCG; QW;
     Dates: start: 20061013
  2. GLEEVEC [Concomitant]

REACTIONS (3)
  - CHEST DISCOMFORT [None]
  - PARAESTHESIA [None]
  - TACHYCARDIA [None]
